FAERS Safety Report 6654387-X (Version None)
Quarter: 2010Q1

REPORT INFORMATION
  Report Type: 
  Country: None (occurrence: None)
  Receive Date: 20100326
  Receipt Date: 20100316
  Transmission Date: 20100710
  Serious: Yes (Hospitalization)
  Sender: FDA-Public Use
  Company Number: DE-PFIZER INC-2009289472

PATIENT
  Age: 71 Year
  Sex: Female

DRUGS (4)
  1. IRINOTECAN HCL [Suspect]
     Indication: COLORECTAL CANCER METASTATIC
     Dosage: 330 MG, BI-WEEKLY TDD: 330 MG
     Route: 042
     Dates: start: 20080610
  2. BEVACIZUMAB [Suspect]
     Indication: COLORECTAL CANCER METASTATIC
     Dosage: 350 MG, BI-WEEKLY TDD: 350 MG
     Route: 042
     Dates: start: 20080610
  3. FLUOROURACIL [Suspect]
     Indication: COLORECTAL CANCER METASTATIC
     Dosage: 5130 MG, BI-WEEKLY TDD: 5130 MG
     Route: 042
     Dates: start: 20080610
  4. FOLINIC ACID [Suspect]
     Indication: COLORECTAL CANCER METASTATIC
     Dosage: 730 MG, BI-WEEKLY TDD: 730 MG
     Route: 042
     Dates: start: 20080610

REACTIONS (1)
  - LUNG ABSCESS [None]
